FAERS Safety Report 18747179 (Version 6)
Quarter: 2022Q2

REPORT INFORMATION
  Report Type: Spontaneous
  Country: US (occurrence: US)
  Receive Date: 20210115
  Receipt Date: 20220503
  Transmission Date: 20220721
  Serious: Yes (Other)
  Sender: FDA-Public Use
  Company Number: US-PFIZER INC-2021017840

PATIENT
  Age: 56 Year
  Sex: Female

DRUGS (8)
  1. INLYTA [Suspect]
     Active Substance: AXITINIB
     Dosage: 5 MG
     Dates: start: 20201229
  2. INLYTA [Suspect]
     Active Substance: AXITINIB
     Dosage: 1 MG, ONCE A DAY
     Dates: start: 20201229
  3. INLYTA [Suspect]
     Active Substance: AXITINIB
     Dosage: 5 MG
     Dates: start: 20201230, end: 20211117
  4. INLYTA [Suspect]
     Active Substance: AXITINIB
     Dosage: 1 MG
     Dates: start: 20201230
  5. INLYTA [Suspect]
     Active Substance: AXITINIB
     Dosage: 3 MG, ONCE A DAY
     Dates: start: 20210101
  6. INLYTA [Suspect]
     Active Substance: AXITINIB
     Dosage: 5 MG
     Dates: start: 20210105, end: 20210110
  7. INLYTA [Suspect]
     Active Substance: AXITINIB
     Dosage: 5 MG, ONCE A DAY
     Dates: start: 20210116
  8. INLYTA [Suspect]
     Active Substance: AXITINIB
     Dosage: 4 MG, DAILY
     Dates: start: 20210109

REACTIONS (10)
  - Renal haemorrhage [Unknown]
  - Back pain [Unknown]
  - Nausea [Unknown]
  - Blood urine present [Recovered/Resolved]
  - Stomatitis [Not Recovered/Not Resolved]
  - Oral mucosal blistering [Recovered/Resolved]
  - Tongue blistering [Recovered/Resolved]
  - Oropharyngeal pain [Unknown]
  - Neoplasm progression [Unknown]
  - Off label use [Unknown]

NARRATIVE: CASE EVENT DATE: 20201229
